FAERS Safety Report 12498292 (Version 1)
Quarter: 2016Q2

REPORT INFORMATION
  Report Type: Report from Study
  Country: FR (occurrence: FR)
  Receive Date: 20160627
  Receipt Date: 20160627
  Transmission Date: 20160815
  Serious: Yes (Hospitalization)
  Sender: FDA-Public Use
  Company Number: FR-ROCHE-1782758

PATIENT

DRUGS (4)
  1. CYCLOPHOSPHAMIDE. [Suspect]
     Active Substance: CYCLOPHOSPHAMIDE
     Indication: WALDENSTROM^S MACROGLOBULINAEMIA
     Dosage: ON DAY 1-3 FOR 6 COURSES
     Route: 048
  2. RITUXIMAB [Suspect]
     Active Substance: RITUXIMAB
     Indication: WALDENSTROM^S MACROGLOBULINAEMIA
     Dosage: DAY 1 FOR 6 COURSES
     Route: 042
  3. FLUDARABINE [Suspect]
     Active Substance: FLUDARABINE PHOSPHATE
     Indication: WALDENSTROM^S MACROGLOBULINAEMIA
     Dosage: ON DAY 1-3 FOR 6 COURSES
     Route: 048
  4. VALACICLOVIR [Concomitant]
     Active Substance: VALACYCLOVIR HYDROCHLORIDE
     Indication: ANTIVIRAL PROPHYLAXIS
     Route: 048

REACTIONS (1)
  - Pneumonia aspiration [Unknown]
